FAERS Safety Report 5376621-9 (Version None)
Quarter: 2007Q2

REPORT INFORMATION
  Report Type: 
  Country: None (occurrence: None)
  Receive Date: 20070628
  Receipt Date: 20070619
  Transmission Date: 20071010
  Serious: Yes (Death, Hospitalization)
  Sender: FDA-Public Use
  Company Number: B0476582A

PATIENT
  Age: 69 Year
  Sex: Female

DRUGS (1)
  1. CHLORAMBUCIL (FORMULATION UNKNOWN) (GENERIC) (CHLORAMBUCIL) [Suspect]
     Indication: CHRONIC LYMPHOCYTIC LEUKAEMIA
     Dosage: 8 MG / PER DAY/

REACTIONS (2)
  - ERYTHEMA MULTIFORME [None]
  - PNEUMONIA [None]
